FAERS Safety Report 20099071 (Version 1)
Quarter: 2021Q4

REPORT INFORMATION
  Report Type: Spontaneous
  Country: US (occurrence: US)
  Receive Date: 20211122
  Receipt Date: 20211122
  Transmission Date: 20220303
  Serious: Yes (Disabling)
  Sender: FDA-Public Use
  Company Number: US-TEVA-2021-US-1979759

PATIENT
  Age: 53 Year
  Sex: Female
  Weight: 92.5 kg

DRUGS (24)
  1. DOCETAXEL [Suspect]
     Active Substance: DOCETAXEL
     Indication: Breast cancer female
     Dosage: 151.5 MG IN NACI, 0.9%, 250 ML, 4 CYCLES EVERY 3 WEEKS
     Route: 042
     Dates: start: 20151020, end: 20160113
  2. CARBOPLATIN [Suspect]
     Active Substance: CARBOPLATIN
     Indication: Breast cancer female
     Dosage: 880.8 MG IN NACI, 0.9%, 200 ML, 4 CYCLES EVERY 3 WEEKS
     Route: 042
     Dates: start: 20151020, end: 20160113
  3. DOCETAXEL [Suspect]
     Active Substance: DOCETAXEL
     Indication: Breast cancer female
     Dosage: 151.5 MG IN NACI, 0.9%, 250 ML, 4 CYCLES EVERY 3 WEEKS
     Route: 042
     Dates: start: 20151020, end: 20160113
  4. DOCETAXEL [Suspect]
     Active Substance: DOCETAXEL
     Indication: Breast cancer female
     Dosage: 151.5 MG IN NACI, 0.9%, 250 ML, 4 CYCLES EVERY 3 WEEKS
     Route: 042
     Dates: start: 20151020, end: 20160113
  5. DOCETAXEL [Suspect]
     Active Substance: DOCETAXEL
     Indication: Breast cancer female
     Dosage: 151.5 MG IN NACI, 0.9%, 250 ML, 4 CYCLES EVERY 3 WEEKS
     Route: 042
     Dates: start: 20151020, end: 20160113
  6. DOCETAXEL [Suspect]
     Active Substance: DOCETAXEL
     Indication: Breast cancer female
     Dosage: 151.5 MG IN NACI, 0.9%, 250 ML, 4 CYCLES EVERY 3 WEEKS
     Route: 042
     Dates: start: 20151020, end: 20160113
  7. DOCETAXEL [Suspect]
     Active Substance: DOCETAXEL
     Indication: Breast cancer female
     Dosage: 151.5 MG IN NACI, 0.9%, 250 ML, 4 CYCLES EVERY 3 WEEKS
     Route: 042
     Dates: start: 20151020, end: 20160113
  8. DOCETAXEL [Suspect]
     Active Substance: DOCETAXEL
     Indication: Breast cancer female
     Dosage: 151.5 MG IN NACI, 0.9%, 250 ML, 4 CYCLES EVERY 3 WEEKS
     Route: 042
     Dates: start: 20151020, end: 20160113
  9. DOCETAXEL [Suspect]
     Active Substance: DOCETAXEL
     Indication: Breast cancer female
     Dosage: 151.5 MG IN NACI, 0.9%, 250 ML, 4 CYCLES EVERY 3 WEEKS
     Route: 042
     Dates: start: 20151020, end: 20160113
  10. TRASTUZUMAB [Suspect]
     Active Substance: TRASTUZUMAB
     Indication: Breast cancer female
     Dosage: 740 MG IN NACI, 0.9%, 250 ML, 4 CYCLES EVERY 3 WEEKS
     Route: 042
     Dates: start: 20151020, end: 20160113
  11. ZYRTEC [Concomitant]
     Active Substance: CETIRIZINE HYDROCHLORIDE
     Route: 048
     Dates: start: 2007
  12. ANASTROZOLE [Concomitant]
     Active Substance: ANASTROZOLE
     Route: 065
  13. POTASSIUM [Concomitant]
     Active Substance: POTASSIUM
     Route: 065
  14. IBUPROFEN [Concomitant]
     Active Substance: IBUPROFEN
     Route: 065
  15. VITAMIN D3 [Concomitant]
     Active Substance: CHOLECALCIFEROL
     Dosage: DOSE: 2000 UNIT
     Route: 048
  16. BIOTIN [Concomitant]
     Active Substance: BIOTIN
     Route: 048
  17. OCUVITE [Concomitant]
     Active Substance: VITAMINS
     Route: 048
  18. VITAMIN B12 [Concomitant]
     Active Substance: CYANOCOBALAMIN
     Dosage: 1000 MICROGRAM DAILY;
     Route: 048
  19. IRON [Concomitant]
     Active Substance: IRON
     Dosage: 108.3333 MILLIGRAM DAILY;
     Route: 048
  20. OMEGA-3 FATTY ACIDS [Concomitant]
     Active Substance: OMEGA-3 FATTY ACIDS
     Dosage: 500 MILLIGRAM DAILY;
     Route: 048
  21. NORCO [Concomitant]
     Active Substance: ACETAMINOPHEN\HYDROCODONE BITARTRATE
     Dosage: 1300 MILLIGRAM DAILY;
     Route: 048
  22. PEGFILGRASTIM [Concomitant]
     Active Substance: PEGFILGRASTIM
     Indication: Prophylaxis
     Route: 058
  23. MUCINEX [Concomitant]
     Active Substance: GUAIFENESIN
     Dosage: 1200 MILLIGRAM DAILY;
     Route: 048
  24. LINZESS [Concomitant]
     Active Substance: LINACLOTIDE

REACTIONS (7)
  - Alopecia areata [Not Recovered/Not Resolved]
  - Madarosis [Not Recovered/Not Resolved]
  - Hair texture abnormal [Not Recovered/Not Resolved]
  - Hair colour changes [Not Recovered/Not Resolved]
  - Fatigue [Recovering/Resolving]
  - Anaemia [Recovered/Resolved]
  - Dyspnoea [Unknown]

NARRATIVE: CASE EVENT DATE: 20150101
